FAERS Safety Report 14405111 (Version 1)
Quarter: 2018Q1

REPORT INFORMATION
  Report Type: Spontaneous
  Country: US (occurrence: US)
  Receive Date: 20180118
  Receipt Date: 20180118
  Transmission Date: 20180509
  Serious: No
  Sender: FDA-Public Use
  Company Number: US-JNJFOC-20171205507

PATIENT
  Sex: Male
  Weight: 22.68 kg

DRUGS (1)
  1. CONCERTA [Suspect]
     Active Substance: METHYLPHENIDATE HYDROCHLORIDE
     Indication: ATTENTION DEFICIT/HYPERACTIVITY DISORDER
     Dosage: WAS ON DRUG FOR 3 YEARS
     Route: 065
     Dates: end: 201701

REACTIONS (1)
  - Drug ineffective [Unknown]
